FAERS Safety Report 6981271-4 (Version None)
Quarter: 2010Q3

REPORT INFORMATION
  Report Type: 
  Country: None (occurrence: None)
  Receive Date: 20100914
  Receipt Date: 20100906
  Transmission Date: 20110219
  Serious: Yes (Other)
  Sender: FDA-Public Use
  Company Number: DE-AMGEN-KDL417148

PATIENT
  Sex: Female

DRUGS (13)
  1. VECTIBIX [Suspect]
     Indication: COLORECTAL CANCER
     Route: 042
     Dates: start: 20100212
  2. VECTIBIX [Suspect]
     Dates: start: 20100226
  3. VECTIBIX [Suspect]
     Dates: start: 20100319
  4. VECTIBIX [Suspect]
     Dates: start: 20100409
  5. VECTIBIX [Suspect]
     Dates: start: 20100430
  6. VECTIBIX [Suspect]
     Dates: start: 20100521
  7. VECTIBIX [Suspect]
     Dates: start: 20100625
  8. VECTIBIX [Suspect]
     Dates: start: 20100716
  9. VECTIBIX [Suspect]
     Dates: start: 20100806
  10. VITAMINS [Suspect]
     Dates: start: 20100601
  11. EMOLLIENTS AND PROTECTIVES [Suspect]
  12. OXYAL [Concomitant]
     Dates: start: 20100501
  13. MINOCYCLINE HCL [Concomitant]
     Dates: start: 20100501

REACTIONS (40)
  - DRUG ERUPTION [None]
  - DRY EYE [None]
  - EYE INFLAMMATION [None]
  - EYELID INFECTION [None]
  - FEELING HOT [None]
  - GENERALISED ERYTHEMA [None]
  - GLOSSODYNIA [None]
  - HAIR DISORDER [None]
  - HAIR GROWTH ABNORMAL [None]
  - HYPERTRICHOSIS [None]
  - ICHTHYOSIS [None]
  - INFLAMMATION [None]
  - LARYNGEAL INFLAMMATION [None]
  - MUSCLE SPASMS [None]
  - NAIL BED INFLAMMATION [None]
  - NAIL GROWTH ABNORMAL [None]
  - NAIL INFECTION [None]
  - NASAL INFLAMMATION [None]
  - OEDEMA MUCOSAL [None]
  - OPEN WOUND [None]
  - ORAL CANDIDIASIS [None]
  - ORAL PAIN [None]
  - PAIN [None]
  - PAIN IN EXTREMITY [None]
  - PARAESTHESIA [None]
  - PARONYCHIA [None]
  - PHOTOSENSITIVITY REACTION [None]
  - RASH PAPULAR [None]
  - SKIN ATROPHY [None]
  - SKIN BURNING SENSATION [None]
  - SKIN DISORDER [None]
  - SKIN FISSURES [None]
  - SKIN HYPERPIGMENTATION [None]
  - SKIN REACTION [None]
  - SKIN ULCER [None]
  - STOMATITIS [None]
  - SWELLING FACE [None]
  - TUMOUR MARKER INCREASED [None]
  - VAGINAL INFLAMMATION [None]
  - VAGINAL LACERATION [None]
